FAERS Safety Report 14806413 (Version 1)
Quarter: 2018Q2

REPORT INFORMATION
  Report Type: Report from Study
  Country: BR (occurrence: BR)
  Receive Date: 20180425
  Receipt Date: 20180425
  Transmission Date: 20180711
  Serious: Yes (Other)
  Sender: FDA-Public Use
  Company Number: PHHY2017BR136703

PATIENT
  Sex: Female
  Weight: 72 kg

DRUGS (10)
  1. FORASEQ [Suspect]
     Active Substance: BUDESONIDE\FORMOTEROL FUMARATE
     Indication: PNEUMONIA
     Dosage: 1 DF, TID (BUDESONIDE 400, FORMOTEROL FUMARATE 12)
     Route: 055
     Dates: start: 2015
  2. ALENIA [Suspect]
     Active Substance: BUDESONIDE\FORMOTEROL FUMARATE
     Indication: PRODUCT USED FOR UNKNOWN INDICATION
     Dosage: UNK
     Route: 065
     Dates: start: 2016
  3. SPIRIVA [Concomitant]
     Active Substance: TIOTROPIUM BROMIDE MONOHYDRATE
     Indication: PRODUCT USED FOR UNKNOWN INDICATION
     Dosage: 2.05 MG, QD
     Route: 065
  4. TAXOL [Concomitant]
     Active Substance: PACLITAXEL
     Indication: PRODUCT USED FOR UNKNOWN INDICATION
     Route: 065
  5. FORASEQ [Suspect]
     Active Substance: BUDESONIDE\FORMOTEROL FUMARATE
     Indication: ASTHMA
     Dosage: 1 DF (BUDESONIDE 200 UG /FORMOTEROL FUMARATE 12UG), QD
     Route: 055
     Dates: start: 200208
  6. FORASEQ [Suspect]
     Active Substance: BUDESONIDE\FORMOTEROL FUMARATE
     Indication: DYSPNOEA
     Dosage: 1 DF (BUDESONIDE 200 UG /FORMOTEROL FUMARATE 12UG), BID
     Route: 055
     Dates: start: 2004
  7. FORASEQ [Suspect]
     Active Substance: BUDESONIDE\FORMOTEROL FUMARATE
     Indication: BRONCHITIS
     Dosage: 1 DF (BUDESONIDE 400 UG /FORMOTEROL FUMARATE 12UG), TID (EVERY 8 HOURS)
     Route: 055
     Dates: start: 2010
  8. ONBREZ BREEZHALER [Suspect]
     Active Substance: INDACATEROL
     Indication: PRODUCT USED FOR UNKNOWN INDICATION
     Dosage: UNK
     Route: 065
     Dates: start: 201203, end: 201208
  9. MIFLONIDE [Suspect]
     Active Substance: BUDESONIDE
     Indication: PRODUCT USED FOR UNKNOWN INDICATION
     Dosage: UNK
     Route: 065
     Dates: start: 201203, end: 201208
  10. FORASEQ [Suspect]
     Active Substance: BUDESONIDE\FORMOTEROL FUMARATE
     Indication: ANAPHYLACTIC SHOCK
     Dosage: 1 DF, BID (BUDESONIDE 200/FORMOTEROL FUMARAT 12)
     Route: 055
     Dates: start: 2011

REACTIONS (12)
  - Cardiac failure [Not Recovered/Not Resolved]
  - Product availability issue [Unknown]
  - Oxygen saturation decreased [Not Recovered/Not Resolved]
  - Drug ineffective [Unknown]
  - Breast cancer [Unknown]
  - Pneumonia [Unknown]
  - Emphysema [Unknown]
  - Dysphonia [Not Recovered/Not Resolved]
  - Smoke sensitivity [Unknown]
  - Fatigue [Unknown]
  - Dyspnoea [Unknown]
  - Lymphoedema [Not Recovered/Not Resolved]

NARRATIVE: CASE EVENT DATE: 2011
